FAERS Safety Report 5476080-1 (Version None)
Quarter: 2007Q4

REPORT INFORMATION
  Report Type: 
  Country: None (occurrence: None)
  Receive Date: 20071003
  Receipt Date: 20070920
  Transmission Date: 20080405
  Serious: Yes (Hospitalization)
  Sender: FDA-Public Use
  Company Number: HK-ELI_LILLY_AND_COMPANY-HK200709006499

PATIENT
  Age: 54 Year
  Sex: Male

DRUGS (9)
  1. PROZAC [Suspect]
     Dosage: 30 MG, EACH MORNING
  2. PROZAC [Suspect]
     Dosage: 70 MG, EACH MORNING
     Dates: start: 20040101
  3. OLANZAPINE [Suspect]
     Dosage: 5 MG, EACH EVENING
     Route: 048
     Dates: start: 20040101
  4. TRIFLUOPERAZINE [Concomitant]
     Dosage: 5 MG, EACH EVENING
  5. TRIHEXYPHENIDYL HCL [Concomitant]
     Dosage: 2 MG, EACH MORNING
  6. CITALOPRAM HYDROBROMIDE [Concomitant]
     Indication: DEPRESSION
     Dosage: 60 MG, DAILY (1/D)
  7. LORAZEPAM [Concomitant]
     Indication: SCHIZOPHRENIA, CATATONIC TYPE
     Dosage: 1 MG, 3/D
     Dates: start: 20050101
  8. ZIPRASIDONE HCL [Concomitant]
     Indication: SCHIZOPHRENIA, CATATONIC TYPE
     Dosage: 10 MG, OTHER
     Route: 030
     Dates: start: 20050101
  9. ZIPRASIDONE HCL [Concomitant]
     Dosage: 60 MG, DAILY (1/D)
     Route: 048
     Dates: start: 20050101

REACTIONS (5)
  - BENIGN PROSTATIC HYPERPLASIA [None]
  - DEPRESSION [None]
  - EXTRAPYRAMIDAL DISORDER [None]
  - SCHIZOPHRENIA, CATATONIC TYPE [None]
  - URINARY RETENTION [None]
